FAERS Safety Report 7287159-6 (Version None)
Quarter: 2010Q4

REPORT INFORMATION
  Report Type: 
  Country: None (occurrence: None)
  Receive Date: 20101220
  Receipt Date: 20100927
  Transmission Date: 20110411
  Serious: Yes (Death)
  Sender: FDA-Public Use
  Company Number: A-US2010-40133

PATIENT
  Age: 4 Year
  Sex: Male
  Weight: 14.5 kg

DRUGS (13)
  1. ZAVESCA [Suspect]
     Indication: NIEMANN-PICK DISEASE
     Dosage: 50 MG, TID, ORAL
     Route: 048
     Dates: start: 20100323, end: 20100922
  2. SIMETHICONE (SIMETICONE) [Concomitant]
  3. NEURONTIN [Concomitant]
  4. GLYCOPYRROLATE [Concomitant]
  5. MIRALAX (MACROGEL) [Concomitant]
  6. ACETAMINOPHEN [Concomitant]
  7. MELATONIN (MELATONIN) [Concomitant]
  8. EUCERIN (PARAFFIN LIQUID, PETROLATUM, WOOL FAT) [Concomitant]
  9. FLOVENT (FULTICASONE PROPIONATE) [Concomitant]
  10. ALBUTEROL (SALBUTAMOL SULFATE) [Concomitant]
  11. URSODIOL [Concomitant]
  12. DIASTAT [Concomitant]
  13. PEPTAMEN (NUTRIENTS NOS) [Concomitant]

REACTIONS (3)
  - NIEMANN-PICK DISEASE [None]
  - ORGAN FAILURE [None]
  - RESPIRATORY FAILURE [None]
